FAERS Safety Report 8219021-6 (Version None)
Quarter: 2012Q1

REPORT INFORMATION
  Report Type: 
  Country: None (occurrence: None)
  Receive Date: 20120307
  Receipt Date: 20111115
  Transmission Date: 20120608
  Serious: Yes (Disabling)
  Sender: FDA-Public Use
  Company Number: 163-21660-11112395

PATIENT
  Age: 61 Year
  Sex: Female
  Weight: 88.4514 kg

DRUGS (1)
  1. ABRAXANE [Suspect]
     Indication: BREAST CANCER
     Dates: start: 20110301, end: 20110513

REACTIONS (2)
  - NEUROPATHY PERIPHERAL [None]
  - HYPOPHAGIA [None]
